FAERS Safety Report 8361332-8 (Version None)
Quarter: 2012Q2

REPORT INFORMATION
  Report Type: 
  Country: None (occurrence: None)
  Receive Date: 20120515
  Receipt Date: 20110804
  Transmission Date: 20120825
  Serious: No
  Sender: FDA-Public Use
  Company Number: US-ALEXION-A201101185

PATIENT
  Sex: Male

DRUGS (2)
  1. SOLIRIS [Suspect]
     Indication: PAROXYSMAL NOCTURNAL HAEMOGLOBINURIA
     Dosage: UNK
     Route: 042
  2. COUMADIN [Concomitant]
     Dosage: UNK

REACTIONS (5)
  - NEUROPATHY PERIPHERAL [None]
  - ALOPECIA [None]
  - WEIGHT INCREASED [None]
  - MEMORY IMPAIRMENT [None]
  - FATIGUE [None]
